FAERS Safety Report 5721654-3 (Version None)
Quarter: 2008Q2

REPORT INFORMATION
  Report Type: 
  Country: None (occurrence: None)
  Receive Date: 20080429
  Receipt Date: 20080423
  Transmission Date: 20081010
  Serious: Yes (Other)
  Sender: FDA-Public Use
  Company Number: PHHY2008BR06414

PATIENT
  Sex: Male

DRUGS (4)
  1. NEOSALDINA [Concomitant]
  2. TYLENOL [Concomitant]
  3. NOVALGINA [Concomitant]
  4. RITALIN [Suspect]
     Indication: PSYCHOMOTOR HYPERACTIVITY
     Dosage: 2 TABLETS EACH IN MORNING,AFTERNOON AND NIGH
     Route: 048

REACTIONS (8)
  - ABNORMAL BEHAVIOUR [None]
  - CHEST PAIN [None]
  - COUGH [None]
  - DENGUE FEVER [None]
  - EPISTAXIS [None]
  - HEADACHE [None]
  - NAUSEA [None]
  - VOMITING [None]
